FAERS Safety Report 4531698-5 (Version None)
Quarter: 2004Q4

REPORT INFORMATION
  Report Type: 
  Country: None (occurrence: None)
  Receive Date: 20041216
  Receipt Date: 20041130
  Transmission Date: 20050328
  Serious: Yes (Hospitalization)
  Sender: FDA-Public Use
  Company Number: CEL-2004-02092-ROC

PATIENT
  Age: 72 Year
  Sex: Female

DRUGS (4)
  1. DIPENTUM [Suspect]
     Dosage: 750MG THREE TIMES DAILY, ROUTE PO
     Route: 048
     Dates: end: 20041129
  2. PROTONIX [Concomitant]
  3. ASPIRIN [Concomitant]
  4. TYLENOL [Concomitant]

REACTIONS (3)
  - CHEST DISCOMFORT [None]
  - CHEST PAIN [None]
  - DYSPNOEA [None]
